FAERS Safety Report 16704058 (Version 1)
Quarter: 2019Q3

REPORT INFORMATION
  Report Type: Report from Study
  Country: PH (occurrence: PH)
  Receive Date: 20190814
  Receipt Date: 20190814
  Transmission Date: 20191004
  Serious: Yes (Death)
  Sender: FDA-Public Use
  Company Number: PH-SEATTLE GENETICS-2019SGN02835

PATIENT
  Age: 68 Year
  Sex: Male

DRUGS (1)
  1. BRENTUXIMAB VEDOTIN-MPI [Suspect]
     Active Substance: BRENTUXIMAB VEDOTIN
     Indication: ANAPLASTIC LARGE-CELL LYMPHOMA
     Dosage: UNK
     Route: 042
     Dates: start: 20190414

REACTIONS (1)
  - Death [Fatal]

NARRATIVE: CASE EVENT DATE: 20190717
